FAERS Safety Report 6691935-8 (Version None)
Quarter: 2010Q2

REPORT INFORMATION
  Report Type: 
  Country: None (occurrence: None)
  Receive Date: 20100422
  Receipt Date: 20090605
  Transmission Date: 20101027
  Serious: No
  Sender: FDA-Public Use
  Company Number: US-ASTRAZENECA-2009UW14372

PATIENT
  Age: 77 Year
  Sex: Female

DRUGS (6)
  1. METOPROLOL SUCCINATE [Suspect]
     Indication: PULMONARY ARTERIAL HYPERTENSION
     Route: 048
  2. CRESTOR [Concomitant]
  3. NEXIUM [Concomitant]
  4. SYNTHROID [Concomitant]
  5. ASPIRIN [Concomitant]
  6. BENICAR HCT [Concomitant]

REACTIONS (3)
  - DEPRESSION [None]
  - DIARRHOEA [None]
  - PAIN IN EXTREMITY [None]
